FAERS Safety Report 8943629 (Version 1)
Quarter: 2012Q4

REPORT INFORMATION
  Report Type: 
  Country: PL (occurrence: PL)
  Receive Date: 20121204
  Receipt Date: 20121204
  Transmission Date: 20130627
  Serious: Yes (Other)
  Sender: FDA-Public Use
  Company Number: PHHY2012PL110788

PATIENT
  Age: 64 Year
  Sex: Male

DRUGS (3)
  1. CICLOSPORIN [Suspect]
     Indication: HEART TRANSPLANT
  2. CICLOSPORIN [Suspect]
     Indication: IMMUNOSUPPRESSION
  3. EVEROLIMUS [Suspect]
     Indication: IMMUNOSUPPRESSION

REACTIONS (4)
  - Adenoma benign [Unknown]
  - Seborrhoea [Unknown]
  - Acne [Unknown]
  - Onychomycosis [Unknown]
